FAERS Safety Report 4595806-2 (Version None)
Quarter: 2005Q1

REPORT INFORMATION
  Report Type: 
  Country: None (occurrence: None)
  Receive Date: 20050224
  Receipt Date: 20050224
  Transmission Date: 20050727
  Serious: Yes (Hospitalization)
  Sender: FDA-Public Use
  Company Number: None

PATIENT
  Age: 64 Year
  Sex: Male
  Weight: 70.7 kg

DRUGS (2)
  1. SERTRALINE 100 MG [Suspect]
     Indication: DEPRESSION
     Dosage: 100 MG QD ORAL
     Route: 048
     Dates: start: 20041230, end: 20050205
  2. LINEZOLID 600 MG [Suspect]
     Indication: BRONCHITIS
     Dosage: 600 MG BID INTRAVENOU
     Route: 042
     Dates: start: 20050111, end: 20050205

REACTIONS (3)
  - BRONCHITIS [None]
  - DISEASE RECURRENCE [None]
  - SEROTONIN SYNDROME [None]
